FAERS Safety Report 7277313-1 (Version None)
Quarter: 2010Q4

REPORT INFORMATION
  Report Type: 
  Country: None (occurrence: None)
  Receive Date: 20101201
  Receipt Date: 20100831
  Transmission Date: 20110411
  Serious: Yes (Other)
  Sender: FDA-Public Use
  Company Number: 314070

PATIENT
  Age: 61 Year
  Sex: Female

DRUGS (11)
  1. NOVOLOG [Suspect]
     Indication: TYPE 2 DIABETES MELLITUS
     Dosage: 3-5 U, BEFORE EACH MEAL, SUBCUTANEOUS
     Route: 058
     Dates: start: 20050101
  2. MELOXICAM [Concomitant]
  3. GLUCOPHAGE /00082701/ (METFORMIN) [Concomitant]
  4. GLIMEPIRIDE [Concomitant]
  5. FUROSEMIDE [Concomitant]
  6. KLOR-CON [Concomitant]
  7. ZETIA [Concomitant]
  8. LISINOPRIL [Concomitant]
  9. DOXEPIN HCL [Concomitant]
  10. PREVACID [Concomitant]
  11. THYROID TAB [Concomitant]

REACTIONS (5)
  - DIARRHOEA [None]
  - HYPERTENSION [None]
  - INCORRECT STORAGE OF DRUG [None]
  - URTICARIA [None]
  - VIRAL INFECTION [None]
